FAERS Safety Report 6569287-3 (Version None)
Quarter: 2010Q1

REPORT INFORMATION
  Report Type: 
  Country: None (occurrence: None)
  Receive Date: 20100201
  Receipt Date: 20100201
  Transmission Date: 20100710
  Serious: Yes (Other)
  Sender: FDA-Public Use
  Company Number: None

PATIENT
  Sex: Female

DRUGS (2)
  1. PREMARIN [Suspect]
     Dosage: 0.625MG/GM QHS VAGINALLY
     Route: 067
     Dates: start: 20090914
  2. PREMARIN [Suspect]
     Dosage: 0.625MG/GM QHS VAGINALLY
     Route: 067
     Dates: start: 20091007

REACTIONS (2)
  - BURNING SENSATION [None]
  - PRURITUS [None]
